FAERS Safety Report 6175055-7 (Version None)
Quarter: 2009Q2

REPORT INFORMATION
  Report Type: 
  Country: None (occurrence: None)
  Receive Date: 20090430
  Receipt Date: 20090213
  Transmission Date: 20091009
  Serious: No
  Sender: FDA-Public Use
  Company Number: US-ASTRAZENECA-2009UW04276

PATIENT
  Sex: Female
  Weight: 81.6 kg

DRUGS (4)
  1. NEXIUM [Suspect]
     Route: 048
     Dates: start: 19930101
  2. PRILOSEC [Suspect]
     Route: 048
     Dates: start: 19930101
  3. ENABLEX [Concomitant]
  4. ZEGERID [Concomitant]

REACTIONS (2)
  - COUGH [None]
  - THROAT IRRITATION [None]
